FAERS Safety Report 11869297 (Version 1)
Quarter: 2015Q4

REPORT INFORMATION
  Report Type: Report from Study
  Country: BR (occurrence: BR)
  Receive Date: 20151226
  Receipt Date: 20151226
  Transmission Date: 20160305
  Serious: Yes (Death, Other)
  Sender: FDA-Public Use
  Company Number: PHHY2015BR169431

PATIENT
  Age: 64 Year
  Sex: Female
  Weight: 37 kg

DRUGS (1)
  1. ACLASTA [Suspect]
     Active Substance: ZOLEDRONIC ACID
     Indication: PRODUCT USED FOR UNKNOWN INDICATION
     Dosage: 5 MG, Q12MO
     Route: 042

REACTIONS (2)
  - Death [Fatal]
  - Embolism [Unknown]

NARRATIVE: CASE EVENT DATE: 20151007
